FAERS Safety Report 24003616 (Version 1)
Quarter: 2024Q2

REPORT INFORMATION
  Report Type: Report from Study
  Country: CA (occurrence: CA)
  Receive Date: 20240624
  Receipt Date: 20240624
  Transmission Date: 20240716
  Serious: Yes (Death, Other)
  Sender: FDA-Public Use
  Company Number: CA-ABBVIE-5804058

PATIENT
  Age: 81 Year
  Sex: Male

DRUGS (22)
  1. VENETOCLAX [Suspect]
     Active Substance: VENETOCLAX
     Indication: Acute myeloid leukaemia
     Route: 048
     Dates: start: 20231116, end: 20231116
  2. VENETOCLAX [Suspect]
     Active Substance: VENETOCLAX
     Indication: Acute myeloid leukaemia
     Dosage: DURATION TEXT: DAYS 3 TO 28
     Route: 048
     Dates: start: 20240514, end: 20240528
  3. VENETOCLAX [Suspect]
     Active Substance: VENETOCLAX
     Indication: Acute myeloid leukaemia
     Route: 048
     Dates: start: 20240103, end: 20240117
  4. VENETOCLAX [Suspect]
     Active Substance: VENETOCLAX
     Indication: Acute myeloid leukaemia
     Route: 048
     Dates: start: 20231115, end: 20231115
  5. VENETOCLAX [Suspect]
     Active Substance: VENETOCLAX
     Indication: Acute myeloid leukaemia
     Route: 048
     Dates: start: 20231117, end: 20231208
  6. VENETOCLAX [Suspect]
     Active Substance: VENETOCLAX
     Indication: Acute myeloid leukaemia
     Dosage: LAST ADMIN DATE: 2024
     Route: 048
     Dates: start: 20240528
  7. METRONIDAZOLE [Concomitant]
     Active Substance: METRONIDAZOLE
     Indication: Febrile neutropenia
     Route: 042
     Dates: start: 20231212, end: 20231212
  8. CIPROFLOXACIN [Concomitant]
     Active Substance: CIPROFLOXACIN
     Indication: Febrile neutropenia
     Route: 048
     Dates: start: 20231206, end: 20231212
  9. AMOXICILLIN AND CLAVULANATE POTASSIUM [Concomitant]
     Active Substance: AMOXICILLIN\CLAVULANATE POTASSIUM
     Indication: Febrile neutropenia
     Route: 048
     Dates: start: 20231206, end: 20231212
  10. Covid 19 vaccine [Concomitant]
     Indication: COVID-19 prophylaxis
     Dosage: FOURTH DOSE, ONE IN ONCE
     Route: 030
  11. Covid 19 vaccine [Concomitant]
     Indication: COVID-19 prophylaxis
     Dosage: SECOND DOSE, ONE IN ONCE
     Route: 030
  12. Covid 19 vaccine [Concomitant]
     Indication: COVID-19 prophylaxis
     Dosage: FIFTH DOSE, ONE IN ONCE
     Route: 030
  13. Covid 19 vaccine [Concomitant]
     Indication: COVID-19 prophylaxis
     Dosage: THIRD DOSE, ONE IN ONCE
     Route: 030
  14. Covid 19 vaccine [Concomitant]
     Indication: COVID-19 prophylaxis
     Dosage: FIRST DOSE, ONE IN ONCE
     Route: 030
  15. PIPERACILLIN AND TAZOBACTAM [Concomitant]
     Active Substance: PIPERACILLIN SODIUM\TAZOBACTAM SODIUM
     Indication: Febrile neutropenia
     Route: 042
     Dates: start: 20231208, end: 20231208
  16. POTASSIUM CHLORIDE [Concomitant]
     Active Substance: POTASSIUM CHLORIDE
     Indication: Febrile neutropenia
     Dosage: FREQUENCY TEXT: 2 DOSES OVER 1 HOUR
     Route: 042
     Dates: start: 20231209, end: 20231209
  17. ACETAMINOPHEN [Concomitant]
     Active Substance: ACETAMINOPHEN
     Indication: Febrile neutropenia
     Dosage: TIME INTERVAL: AS NECESSARY: FREQUENCY TEXT: EVERY 4 HOUR AS NEEDED
     Route: 048
     Dates: start: 20231130, end: 20231219
  18. SODIUM CHLORIDE [Concomitant]
     Active Substance: SODIUM CHLORIDE
     Indication: Febrile neutropenia
     Dosage: 0.9 %?FREQUENCY TEXT: ONTINUOUS IV X4 HRS
     Route: 042
     Dates: start: 20231130, end: 20231130
  19. POTASSIUM CITRATE [Concomitant]
     Active Substance: POTASSIUM CITRATE
     Indication: Febrile neutropenia
     Dosage: FREQUENCY TEXT: ONCE
     Route: 042
     Dates: start: 20231209, end: 20231209
  20. AZACITIDINE [Suspect]
     Active Substance: AZACITIDINE
     Indication: Product used for unknown indication
     Dosage: LAST ADMIN DATE: 2024
     Route: 065
     Dates: start: 20240103
  21. AZACITIDINE [Suspect]
     Active Substance: AZACITIDINE
     Indication: Product used for unknown indication
     Route: 065
     Dates: start: 20231115, end: 20231121
  22. AZACITIDINE [Suspect]
     Active Substance: AZACITIDINE
     Indication: Product used for unknown indication
     Route: 065
     Dates: start: 20240514, end: 20240520

REACTIONS (1)
  - Febrile neutropenia [Fatal]

NARRATIVE: CASE EVENT DATE: 20240528
